FAERS Safety Report 15960638 (Version 1)
Quarter: 2019Q1

REPORT INFORMATION
  Report Type: Spontaneous
  Country: US (occurrence: US)
  Receive Date: 20190214
  Receipt Date: 20190214
  Transmission Date: 20190417
  Serious: Yes (Death, Other)
  Sender: FDA-Public Use
  Company Number: US-EMD SERONO-7152004

PATIENT
  Age: 52 Year
  Sex: Female

DRUGS (2)
  1. VITAMIN D                          /00107901/ [Concomitant]
     Active Substance: ERGOCALCIFEROL
     Indication: PRODUCT USED FOR UNKNOWN INDICATION
  2. REBIF [Suspect]
     Active Substance: INTERFERON BETA-1A
     Indication: MULTIPLE SCLEROSIS
     Route: 058
     Dates: start: 20060724

REACTIONS (9)
  - Injection site discolouration [Not Recovered/Not Resolved]
  - Viral infection [Unknown]
  - Injection site pain [Not Recovered/Not Resolved]
  - Injection site indentation [Not Recovered/Not Resolved]
  - Myocardial infarction [Fatal]
  - Bundle branch block left [Not Recovered/Not Resolved]
  - Cardiac failure congestive [Recovering/Resolving]
  - Myocardial ischaemia [Unknown]
  - Cardiomyopathy [Unknown]

NARRATIVE: CASE EVENT DATE: 201203
